FAERS Safety Report 11336647 (Version 2)
Quarter: 2015Q3

REPORT INFORMATION
  Report Type: Report from Study
  Country: AT (occurrence: AT)
  Receive Date: 20150804
  Receipt Date: 20150806
  Transmission Date: 20151125
  Serious: Yes (Congenital Anomaly)
  Sender: FDA-Public Use
  Company Number: AT-UCBSA-2015024322

PATIENT

DRUGS (1)
  1. LEVETIRACETAM. [Suspect]
     Active Substance: LEVETIRACETAM
     Indication: EPILEPSY
     Dosage: DAILY DOSE: 2000 (UNIT UNSPECIFIED)
     Route: 064
     Dates: start: 2011, end: 201203

REACTIONS (2)
  - Foetal exposure during pregnancy [Unknown]
  - Tuberous sclerosis [Unknown]

NARRATIVE: CASE EVENT DATE: 2011
